FAERS Safety Report 8465617-6 (Version None)
Quarter: 2012Q2

REPORT INFORMATION
  Report Type: 
  Country: None (occurrence: None)
  Receive Date: 20120619
  Receipt Date: 20120523
  Transmission Date: 20120825
  Serious: Yes (Hospitalization)
  Sender: FDA-Public Use
  Company Number: INT_00073_2012

PATIENT
  Age: 36 Year
  Sex: Female

DRUGS (1)
  1. CEFTRIAXONE [Suspect]
     Indication: UPPER RESPIRATORY TRACT INFECTION
     Dosage: (DF INTRAVENOUS (NOT OTHERWISE SPECIFIED))
     Route: 042

REACTIONS (8)
  - ACUTE RESPIRATORY FAILURE [None]
  - HAEMODYNAMIC INSTABILITY [None]
  - ANAPHYLACTIC REACTION [None]
  - CARDIOGENIC SHOCK [None]
  - PNEUMONIA [None]
  - MULTI-ORGAN FAILURE [None]
  - RENAL FAILURE [None]
  - PULMONARY OEDEMA [None]
